FAERS Safety Report 13915406 (Version 1)
Quarter: 2017Q3

REPORT INFORMATION
  Report Type: Spontaneous
  Country: US (occurrence: US)
  Receive Date: 20170829
  Receipt Date: 20170829
  Transmission Date: 20171127
  Serious: Yes (Other)
  Sender: FDA-Public Use
  Company Number: US-UCBSA-2017033325

PATIENT
  Age: 18 Year
  Sex: Female

DRUGS (2)
  1. BRIVIACT [Suspect]
     Active Substance: BRIVARACETAM
     Indication: PRODUCT USED FOR UNKNOWN INDICATION
     Dosage: UNK
     Dates: start: 2017, end: 2017
  2. BRIVIACT [Suspect]
     Active Substance: BRIVARACETAM
     Dosage: WORKED UP TO 150 MG (3/50MG) AM + 200 MG (4/50MG) PM
     Dates: start: 2017, end: 20170815

REACTIONS (4)
  - Change in seizure presentation [Recovered/Resolved]
  - Adverse drug reaction [Recovering/Resolving]
  - Overdose [Unknown]
  - Seizure [Recovered/Resolved]

NARRATIVE: CASE EVENT DATE: 2017
